FAERS Safety Report 12801001 (Version 1)
Quarter: 2016Q4

REPORT INFORMATION
  Report Type: Spontaneous
  Country: US (occurrence: US)
  Receive Date: 20161003
  Receipt Date: 20161003
  Transmission Date: 20170207
  Serious: No
  Sender: FDA-Public Use
  Company Number: US-AUROBINDO-AUR-APL-2015-10740

PATIENT
  Sex: Female
  Weight: 77.11 kg

DRUGS (1)
  1. SUMATRIPTAN TABLETS 50MG [Suspect]
     Active Substance: SUMATRIPTAN
     Indication: MIGRAINE
     Dosage: 50 MG, UNK
     Route: 048

REACTIONS (2)
  - Circumstance or information capable of leading to medication error [Recovered/Resolved]
  - Drug administration error [None]
